FAERS Safety Report 7794649-6 (Version None)
Quarter: 2011Q4

REPORT INFORMATION
  Report Type: 
  Country: None (occurrence: None)
  Receive Date: 20111003
  Receipt Date: 20111003
  Transmission Date: 20120403
  Serious: Yes (Hospitalization)
  Sender: FDA-Public Use
  Company Number: None

PATIENT
  Sex: Male
  Weight: 54.2 kg

DRUGS (2)
  1. VINCRISTINE SULFATE [Suspect]
     Dosage: 4 MG
  2. PEG-L- ASPARAGINASE (K- H) [Suspect]
     Dosage: 3975 MG

REACTIONS (1)
  - PANCREATITIS [None]
